FAERS Safety Report 19709503 (Version 1)
Quarter: 2021Q3

REPORT INFORMATION
  Report Type: Report from Study
  Country: US (occurrence: US)
  Receive Date: 20210817
  Receipt Date: 20210817
  Transmission Date: 20211014
  Serious: Yes (Death)
  Sender: FDA-Public Use
  Company Number: US-ASTRAZENECA-2021A683123

PATIENT
  Sex: Female

DRUGS (2)
  1. LYNPARZA [Suspect]
     Active Substance: OLAPARIB
     Indication: NEOPLASM MALIGNANT
     Route: 048
     Dates: end: 20210223
  2. NEUPOGEN [Concomitant]
     Active Substance: FILGRASTIM

REACTIONS (1)
  - Death [Fatal]
